FAERS Safety Report 5073983-7 (Version None)
Quarter: 2006Q3

REPORT INFORMATION
  Report Type: 
  Country: None (occurrence: None)
  Receive Date: 20060808
  Receipt Date: 20060526
  Transmission Date: 20061208
  Serious: Yes (Other)
  Sender: FDA-Public Use
  Company Number: DE-ROCHE-449857

PATIENT
  Age: 46 Year
  Sex: Male
  Weight: 80.7 kg

DRUGS (4)
  1. PEGASYS [Suspect]
     Route: 058
     Dates: start: 20041026, end: 20050926
  2. COPEGUS [Suspect]
     Route: 048
     Dates: start: 20041026, end: 20050926
  3. TENOFOVIR [Suspect]
     Indication: DRUG USE FOR UNKNOWN INDICATION
     Route: 065
  4. UNSPECIFIED DRUG [Suspect]
     Indication: HIV INFECTION
     Dosage: DRUG NAME REPORTED AS HAART: ANTIRETROVIRAL COMBINATION THERAPY (ART).
     Route: 065
     Dates: start: 19970415

REACTIONS (4)
  - LIPODYSTROPHY ACQUIRED [None]
  - LIPOHYPERTROPHY [None]
  - NECK PAIN [None]
  - THERAPEUTIC PRODUCT INEFFECTIVE [None]
